FAERS Safety Report 14128238 (Version 1)
Quarter: 2017Q4

REPORT INFORMATION
  Report Type: Spontaneous
  Country: US (occurrence: US)
  Receive Date: 20171026
  Receipt Date: 20171026
  Transmission Date: 20180321
  Serious: No
  Sender: FDA-Public Use
  Company Number: US-ASTRAZENECA-2017SF04358

PATIENT
  Age: 76 Year
  Sex: Male
  Weight: 66.7 kg

DRUGS (3)
  1. OXYGEN. [Concomitant]
     Active Substance: OXYGEN
     Dosage: 3L CONTINUOUSLY AT NIGHT AND AS NEEDED DURING THE DAY
     Route: 045
  2. SYMBICORT [Suspect]
     Active Substance: BUDESONIDE\FORMOTEROL FUMARATE DIHYDRATE
     Indication: EMPHYSEMA
     Dosage: 160/4.5MCG, TWO PUFFS TWICE DAILY APPROXIMATELY TWELVE HOURS APART
     Route: 055
     Dates: start: 2016
  3. SPIRIVA [Concomitant]
     Active Substance: TIOTROPIUM BROMIDE MONOHYDRATE
     Indication: DYSPNOEA
     Dosage: DAILY
     Route: 055
     Dates: start: 2016

REACTIONS (5)
  - Pulmonary mass [Not Recovered/Not Resolved]
  - Dry mouth [Not Recovered/Not Resolved]
  - Intentional product misuse [Not Recovered/Not Resolved]
  - Device malfunction [Unknown]
  - Product storage error [Not Recovered/Not Resolved]

NARRATIVE: CASE EVENT DATE: 2016
